FAERS Safety Report 4636579-4 (Version None)
Quarter: 2005Q2

REPORT INFORMATION
  Report Type: 
  Country: None (occurrence: None)
  Receive Date: 20050414
  Receipt Date: 20050405
  Transmission Date: 20051028
  Serious: Yes (Hospitalization)
  Sender: FDA-Public Use
  Company Number: 05P-163-0296286-00

PATIENT
  Age: 4 Year
  Sex: Male

DRUGS (2)
  1. DEPAKENE [Suspect]
     Indication: CONVULSION
  2. CORTICOTROPIN [Suspect]
     Indication: INFANTILE SPASMS

REACTIONS (8)
  - BLOOD PRESSURE IMMEASURABLE [None]
  - CANDIDIASIS [None]
  - HYPERTENSION [None]
  - PANCREAS INFECTION [None]
  - PANCREATITIS HAEMORRHAGIC [None]
  - PSEUDOCYST [None]
  - PULMONARY OEDEMA [None]
  - SEPSIS [None]
